FAERS Safety Report 14605285 (Version 1)
Quarter: 2018Q1

REPORT INFORMATION
  Report Type: Spontaneous
  Country: US (occurrence: US)
  Receive Date: 20180306
  Receipt Date: 20180306
  Transmission Date: 20180509
  Serious: No
  Sender: FDA-Public Use
  Company Number: US-TARO-2017TAR01030

PATIENT
  Age: 54 Year
  Sex: Female
  Weight: 49.89 kg

DRUGS (1)
  1. TERCONAZOLE VAGINAL CREAM 0.4% [Suspect]
     Active Substance: TERCONAZOLE
     Indication: UNEVALUABLE EVENT
     Dosage: UNK, AS NEEDED
     Route: 067
     Dates: start: 201711

REACTIONS (3)
  - Incorrect drug administration duration [Not Recovered/Not Resolved]
  - Application site pain [Not Recovered/Not Resolved]
  - Product quality issue [Not Recovered/Not Resolved]

NARRATIVE: CASE EVENT DATE: 201711
